FAERS Safety Report 4659166-0 (Version None)
Quarter: 2005Q2

REPORT INFORMATION
  Report Type: 
  Country: None (occurrence: None)
  Receive Date: 20050510
  Receipt Date: 20050427
  Transmission Date: 20051028
  Serious: Yes (Other)
  Sender: FDA-Public Use
  Company Number: 214092

PATIENT
  Sex: Female

DRUGS (1)
  1. RITUXAN [Suspect]
     Indication: NON-HODGKIN'S LYMPHOMA
     Dates: start: 20050130

REACTIONS (5)
  - EAR PAIN [None]
  - LOWER RESPIRATORY TRACT INFECTION [None]
  - OESOPHAGEAL INFECTION [None]
  - PHARYNGOLARYNGEAL PAIN [None]
  - SINUSITIS [None]
